FAERS Safety Report 13043308 (Version 7)
Quarter: 2018Q2

REPORT INFORMATION
  Report Type: Report from Study
  Country: DE (occurrence: DE)
  Receive Date: 20161219
  Receipt Date: 20180504
  Transmission Date: 20180711
  Serious: Yes (Other)
  Sender: FDA-Public Use
  Company Number: DE-ROCHE-1869044

PATIENT
  Age: 69 Year
  Sex: Male
  Weight: 69 kg

DRUGS (6)
  1. TALCID [Concomitant]
     Active Substance: HYDROTALCITE
  2. THOMAPYRIN [Concomitant]
     Dosage: AS REQUIRED
     Route: 065
  3. QUETIAPIN [Concomitant]
     Active Substance: QUETIAPINE
     Route: 065
  4. PANTOPRAZOL [Concomitant]
     Active Substance: PANTOPRAZOLE SODIUM
     Route: 065
  5. ESBRIET [Suspect]
     Active Substance: PIRFENIDONE
     Indication: IDIOPATHIC PULMONARY FIBROSIS
     Route: 048
     Dates: start: 20150413, end: 201709
  6. OPIPRAMOL [Concomitant]
     Active Substance: OPIPRAMOL
     Dosage: AT NIGHT
     Route: 065

REACTIONS (17)
  - Pulmonary mass [Unknown]
  - Asthenia [Unknown]
  - Eczema [Recovering/Resolving]
  - Respiratory disorder [Recovering/Resolving]
  - Abdominal pain upper [Not Recovered/Not Resolved]
  - Malignant neoplasm progression [Not Recovered/Not Resolved]
  - Hyperaesthesia [Unknown]
  - Lung neoplasm malignant [Unknown]
  - Dyspnoea exertional [Unknown]
  - Decreased appetite [Not Recovered/Not Resolved]
  - Fatigue [Not Recovered/Not Resolved]
  - Large intestine polyp [Unknown]
  - Fatigue [Unknown]
  - Photosensitivity reaction [Unknown]
  - Nasopharyngitis [Recovered/Resolved]
  - Gastric disorder [Recovering/Resolving]
  - Cough [Not Recovered/Not Resolved]

NARRATIVE: CASE EVENT DATE: 201509
